FAERS Safety Report 12550669 (Version 1)
Quarter: 2016Q3

REPORT INFORMATION
  Report Type: Spontaneous
  Country: FR (occurrence: FR)
  Receive Date: 20160712
  Receipt Date: 20160712
  Transmission Date: 20161109
  Serious: Yes (Death, Other)
  Sender: FDA-Public Use
  Company Number: FR-IMPAX LABORATORIES, INC-2016-IPXL-00746

PATIENT
  Age: 48 Year
  Sex: Female

DRUGS (1)
  1. ADRENACLICK [Suspect]
     Active Substance: EPINEPHRINE
     Indication: ARTHROSCOPY
     Dosage: UNK
     Route: 030

REACTIONS (2)
  - Stress cardiomyopathy [Fatal]
  - Hypertension [Unknown]
